FAERS Safety Report 10246037 (Version 1)
Quarter: 2013Q4

REPORT INFORMATION
  Report Type: Spontaneous
  Country: US (occurrence: None)
  Receive Date: 20130215
  Receipt Date: 20130215
  Transmission Date: 20140711
  Serious: Yes (Hospitalization)
  Sender: FDA-Public Use
  Company Number: 2013-0685

PATIENT
  Age: 54 Year
  Sex: Female

DRUGS (1)
  1. SOMATULINE DEPOT INJECTION [Suspect]
     Indication: ACROMEGALY
     Dates: start: 201004

REACTIONS (3)
  - Chest pain [None]
  - Vomiting [None]
  - Pulmonary mass [None]
